FAERS Safety Report 18628943 (Version 1)
Quarter: 2020Q4

REPORT INFORMATION
  Report Type: Spontaneous
  Country: US (occurrence: US)
  Receive Date: 20201217
  Receipt Date: 20201217
  Transmission Date: 20210114
  Serious: No
  Sender: FDA-Public Use
  Company Number: US-TAKEDA-2020TUS058045

PATIENT
  Sex: Female
  Weight: 79.37 kg

DRUGS (10)
  1. PREDNISONE. [Concomitant]
     Active Substance: PREDNISONE
  2. LOVENOX [Concomitant]
     Active Substance: ENOXAPARIN SODIUM
  3. PAXIL [PIROXICAM] [Concomitant]
     Active Substance: PIROXICAM
  4. GAMMAGARD LIQUID [Suspect]
     Active Substance: HUMAN IMMUNOGLOBULIN G
     Indication: CONGENITAL HYPOGAMMAGLOBULINAEMIA
     Dosage: 32 GRAM, Q4WEEKS
     Route: 042
     Dates: start: 20190911
  5. GABAPENTIN. [Concomitant]
     Active Substance: GABAPENTIN
  6. VITAMIN B12 [Concomitant]
     Active Substance: CYANOCOBALAMIN
  7. SEROQUEL [Concomitant]
     Active Substance: QUETIAPINE FUMARATE
  8. TYLENOL [Concomitant]
     Active Substance: ACETAMINOPHEN
  9. MULTIVITAMINS [VITAMINS NOS] [Concomitant]
     Active Substance: VITAMINS
  10. BOOST [Concomitant]
     Active Substance: DIETARY SUPPLEMENT

REACTIONS (2)
  - Incorrect dose administered [Unknown]
  - No adverse event [Unknown]
